FAERS Safety Report 4556084-3 (Version None)
Quarter: 2005Q1

REPORT INFORMATION
  Report Type: 
  Country: None (occurrence: None)
  Receive Date: 20050114
  Receipt Date: 20050105
  Transmission Date: 20050727
  Serious: Yes (Death, Life-Threatening, Hospitalization, Other)
  Sender: FDA-Public Use
  Company Number: 2005006201

PATIENT
  Age: 36 Year
  Sex: Male
  Weight: 80 kg

DRUGS (6)
  1. NEURONTIN [Suspect]
     Indication: HIV INFECTION
     Dosage: 1200 MG (400 MG, 3 IN 1 D), ORAL
     Route: 048
     Dates: end: 20041001
  2. LAMIVUDINE AND ZIDOVUDINE [Suspect]
     Indication: HIV INFECTION
     Dosage: 300 MG (150 MG, 2 IN 1 D), ORAL
     Route: 048
     Dates: end: 20041001
  3. RIBAVIRIN [Suspect]
     Indication: HEPATITIS B VIRUS
     Dosage: 1 GRAM (1 IN 1 D), ORAL
     Route: 048
     Dates: end: 20041001
  4. KALETRA [Suspect]
     Indication: HIV INFECTION
     Dosage: (2 IN 1 D), ORAL
     Route: 048
     Dates: end: 20041001
  5. PEGINTERFERON ALFA-2B (PEGINTERFERON ALFA-2B) [Suspect]
     Indication: HEPATITIS B VIRUS
     Dosage: SUBCUTANEOUS
     Route: 058
     Dates: end: 20040101
  6. BUPRENORPHINE HYDROCHLORIDE [Suspect]
     Indication: DRUG ABUSER
     Dosage: 8 MG (8 MG, 1 IN 1 D), SUBLINGUAL
     Route: 060
     Dates: end: 20041001

REACTIONS (2)
  - ENCEPHALOPATHY [None]
  - HEPATIC FAILURE [None]
